FAERS Safety Report 4581704-7 (Version None)
Quarter: 2005Q1

REPORT INFORMATION
  Report Type: 
  Country: None (occurrence: None)
  Receive Date: 20050214
  Receipt Date: 20041221
  Transmission Date: 20050727
  Serious: No
  Sender: FDA-Public Use
  Company Number: US-GLAXOSMITHKLINE-A0538233A

PATIENT
  Age: 78 Year
  Sex: Female

DRUGS (12)
  1. LAMICTAL [Suspect]
     Dosage: 25MG TWICE PER DAY
     Route: 048
     Dates: start: 20041026, end: 20041028
  2. VERAPAMIL [Concomitant]
  3. DIOVAN [Concomitant]
  4. HYDROCHLOROTHIAZIDE [Concomitant]
  5. PRILOSEC [Concomitant]
  6. ASPIRIN [Concomitant]
  7. LIPITOR [Concomitant]
  8. ZOLOFT [Concomitant]
  9. DOXAZOSIN [Concomitant]
  10. AVINZA [Concomitant]
  11. SINGULAIR [Concomitant]
  12. PULMICORT [Concomitant]

REACTIONS (2)
  - PRURITUS [None]
  - RASH [None]
